FAERS Safety Report 12582106 (Version 1)
Quarter: 2016Q3

REPORT INFORMATION
  Report Type: Spontaneous
  Country: GB (occurrence: GB)
  Receive Date: 20160722
  Receipt Date: 20160722
  Transmission Date: 20161109
  Serious: Yes (Hospitalization)
  Sender: FDA-Public Use
  Company Number: GB-ACCORD-042592

PATIENT
  Age: 62 Year
  Sex: Male

DRUGS (1)
  1. CARBIDOPA/LEVODOPA [Suspect]
     Active Substance: CARBIDOPA\LEVODOPA
     Indication: AKINESIA
     Dosage: 24-HOUR INFUSION

REACTIONS (4)
  - Paranoia [Recovered/Resolved]
  - Dopamine dysregulation syndrome [Recovered/Resolved]
  - Intentional overdose [Unknown]
  - Delusion of replacement [Recovered/Resolved]
